FAERS Safety Report 9444007 (Version 4)
Quarter: 2013Q4

REPORT INFORMATION
  Report Type: Spontaneous
  Country: US (occurrence: US)
  Receive Date: 20130807
  Receipt Date: 20131120
  Transmission Date: 20140711
  Serious: Yes (Hospitalization, Other)
  Sender: FDA-Public Use
  Company Number: US-009507513-1307USA016287

PATIENT
  Age: 59 Year
  Sex: Male
  Weight: 81.18 kg

DRUGS (6)
  1. PEG-INTRON [Suspect]
     Indication: HEPATITIS C
     Dosage: 80 MICROGRAM, QW
     Route: 058
     Dates: start: 20130710, end: 20130812
  2. REBETOL [Suspect]
     Indication: HEPATITIS C
     Dosage: UNK
     Route: 048
     Dates: start: 20130710, end: 20130812
  3. PEPCID [Concomitant]
     Dosage: 1 TABLET BID
     Route: 048
     Dates: start: 20130130
  4. MAG OX [Concomitant]
     Dosage: 2 TABLETS BID
     Route: 048
     Dates: start: 20130429
  5. ACTIGALL [Concomitant]
     Dosage: 1 CAPSULE, TID
     Route: 048
     Dates: start: 20130731
  6. BACTRIM [Concomitant]
     Dosage: 1 TABLET BY MOUTH EVERY MONDAY, WEDNESDAY AND FRIDAY
     Route: 048
     Dates: start: 20121106

REACTIONS (12)
  - Transplant rejection [Not Recovered/Not Resolved]
  - Biliary colic [Unknown]
  - Bile duct stent insertion [Unknown]
  - Hepatic steatosis [Unknown]
  - Pruritus [Unknown]
  - Influenza like illness [Unknown]
  - Rash pruritic [Recovering/Resolving]
  - Blood bilirubin increased [Recovering/Resolving]
  - Lymphocyte stimulation test positive [Recovering/Resolving]
  - Abdominal pain [Recovering/Resolving]
  - Abdominal distension [Recovering/Resolving]
  - Injection site rash [Unknown]
